FAERS Safety Report 6181728-2 (Version None)
Quarter: 2009Q2

REPORT INFORMATION
  Report Type: 
  Country: None (occurrence: None)
  Receive Date: 20090422
  Receipt Date: 20090417
  Transmission Date: 20091009
  Serious: Yes (Other)
  Sender: FDA-Public Use
  Company Number: GAM-036-09-AU

PATIENT
  Age: 29 Year
  Sex: Female

DRUGS (3)
  1. OCTAGAM [Suspect]
     Indication: ANTIPHOSPHOLIPID SYNDROME
     Dosage: 67.5 G; I.V.
     Route: 042
     Dates: start: 20080312, end: 20090302
  2. ASPIRIN [Concomitant]
  3. ENOXAPARIN SODIUM [Concomitant]

REACTIONS (4)
  - DRUG EXPOSURE DURING PREGNANCY [None]
  - HEPATITIS B ANTIBODY POSITIVE [None]
  - INTRA-UTERINE DEATH [None]
  - TRANSMISSION OF AN INFECTIOUS AGENT VIA A MEDICINAL PRODUCT [None]
